FAERS Safety Report 25906732 (Version 2)
Quarter: 2025Q4

REPORT INFORMATION
  Report Type: Spontaneous
  Country: CA (occurrence: CA)
  Receive Date: 20251010
  Receipt Date: 20251112
  Transmission Date: 20260118
  Serious: Yes (Other)
  Sender: PFIZER
  Company Number: CA-PFIZER INC-202500200705

PATIENT
  Age: 41 Year
  Sex: Male

DRUGS (10)
  1. IXIFI [Suspect]
     Active Substance: INFLIXIMAB-QBTX
     Indication: Colitis ulcerative
     Dosage: 10 MG/KG, EVERY 6 WEEK
     Route: 042
     Dates: start: 20250616
  2. IXIFI [Suspect]
     Active Substance: INFLIXIMAB-QBTX
     Dosage: 10 MG/KG, EVERY 6 WEEK
     Route: 042
     Dates: start: 20250909
  3. FOLIC ACID [Concomitant]
     Active Substance: FOLIC ACID
     Dosage: 1 DF, UNKNOWN DOSE AND FREQUENCY
     Dates: start: 2008
  4. CALCIUM [Concomitant]
     Active Substance: CALCIUM
     Dosage: 1 DF, UNKNOWN DOSE AND FREQUENCY
     Dates: start: 20240906
  5. METHOTREXATE [Concomitant]
     Active Substance: METHOTREXATE
     Dosage: 80 MG, WEEKLY
     Dates: start: 2008
  6. MESALAMINE [Concomitant]
     Active Substance: MESALAMINE
     Dosage: 1 DF, UNKNOWN DOSE AND FREQUENCY
     Dates: start: 202301
  7. PREDNISONE [Concomitant]
     Active Substance: PREDNISONE
     Dosage: 1 DF, UNKNOWN DOSE AND FREQUENCY
     Dates: start: 20240906
  8. MESALAMINE [Concomitant]
     Active Substance: MESALAMINE
     Dosage: 1000 MG, 1X/DAY
     Dates: start: 202301
  9. SULFAMETHOXAZOLE\TRIMETHOPRIM [Concomitant]
     Active Substance: SULFAMETHOXAZOLE\TRIMETHOPRIM
     Dosage: 1 DF,800-160 MG
     Dates: start: 20240906
  10. VIT D [VITAMIN D NOS] [Concomitant]
     Dosage: 1 DF, UNKNOWN DOSE AND FREQUENCY
     Dates: start: 2008

REACTIONS (1)
  - Autoimmune hepatitis [Not Recovered/Not Resolved]
